FAERS Safety Report 9203436 (Version 1)
Quarter: 2013Q1

REPORT INFORMATION
  Report Type: Spontaneous
  Country: US (occurrence: None)
  Receive Date: 20120709
  Receipt Date: 20120709
  Transmission Date: 20140127
  Serious: No
  Sender: FDA-Public Use
  Company Number: 2012HGS-003698

PATIENT
  Age: 50 Year
  Sex: Female
  Weight: 101.15 kg

DRUGS (5)
  1. BENLYSTA [Suspect]
     Indication: SYSTEMIC LUPUS ERYTHEMATOSUS
     Dosage: 1 IN 28 D
     Route: 041
     Dates: start: 20111129
  2. OXYCONTIN (OXYCODONE HYDROCHLORIDE) (OXYCODONE HYDROCHLORIDE) [Concomitant]
  3. PREDNISONE (PREDNISONE) (PREDNISONE) [Concomitant]
     Dosage: 1 IN 1 D
  4. AZATHIOPRINE (AZATHIOPRINE) (AZATHIOPRINE) [Concomitant]
  5. AMBIEN (ZOLPIDEM TARTRATE) (ZOLPIDEM TARTRATE) [Concomitant]

REACTIONS (2)
  - Skin discolouration [None]
  - Fatigue [None]
